FAERS Safety Report 18112271 (Version 1)
Quarter: 2020Q3

REPORT INFORMATION
  Report Type: Spontaneous
  Country: GB (occurrence: GB)
  Receive Date: 20200805
  Receipt Date: 20200805
  Transmission Date: 20201103
  Serious: Yes (Other)
  Sender: FDA-Public Use
  Company Number: GB-TEVA-2020-GB-1808255

PATIENT
  Age: 85 Year
  Sex: Male
  Weight: 81 kg

DRUGS (8)
  1. TAMSULOSIN [Concomitant]
     Active Substance: TAMSULOSIN
  2. ROPINIROLE. [Suspect]
     Active Substance: ROPINIROLE
     Indication: RESTLESS LEGS SYNDROME
     Dosage: 500 MICROGRAM DAILY; AT NIGHT
     Route: 048
     Dates: start: 20200701, end: 20200709
  3. ATORVASTATIN CALCIUM. [Concomitant]
     Active Substance: ATORVASTATIN CALCIUM
  4. BISOPROLOL FUMARATE. [Concomitant]
     Active Substance: BISOPROLOL FUMARATE
  5. ACETYLSALICYLIC ACID [Concomitant]
     Active Substance: ASPIRIN
  6. FERROUS FUMARATE [Concomitant]
     Active Substance: FERROUS FUMARATE
  7. ROPINIROLE. [Suspect]
     Active Substance: ROPINIROLE
     Dosage: 250 MICROGRAM DAILY; FOR 12 NIGHTS
     Route: 048
     Dates: start: 20200619, end: 20200630
  8. EPLERENONE. [Concomitant]
     Active Substance: EPLERENONE

REACTIONS (2)
  - Swollen tongue [Recovering/Resolving]
  - Lip swelling [Recovering/Resolving]

NARRATIVE: CASE EVENT DATE: 20200707
